FAERS Safety Report 22081236 (Version 2)
Quarter: 2023Q1

REPORT INFORMATION
  Report Type: Spontaneous
  Country: US (occurrence: US)
  Receive Date: 20230309
  Receipt Date: 20230313
  Transmission Date: 20230417
  Serious: No
  Sender: FDA-Public Use
  Company Number: US-ALVOGEN-2022-ALVOGEN-120747

PATIENT
  Age: 67 Year
  Sex: Male

DRUGS (1)
  1. BUPRENORPHINE\NALOXONE [Suspect]
     Active Substance: BUPRENORPHINE\NALOXONE
     Indication: Pain management
     Route: 060

REACTIONS (5)
  - Dyspnoea [Recovering/Resolving]
  - Suffocation feeling [Unknown]
  - Panic reaction [Unknown]
  - Drug ineffective [Unknown]
  - Intentional product use issue [Unknown]
